FAERS Safety Report 8817784 (Version 2)
Quarter: 2012Q4

REPORT INFORMATION
  Report Type: 
  Country: CL (occurrence: CL)
  Receive Date: 20121001
  Receipt Date: 20121005
  Transmission Date: 20130627
  Serious: Yes (Other)
  Sender: FDA-Public Use
  Company Number: PHHY2012CL085116

PATIENT
  Age: 42 Year
  Sex: Female
  Weight: 60 kg

DRUGS (3)
  1. GILENYA [Suspect]
     Indication: RELAPSING-REMITTING MULTIPLE SCLEROSIS
     Dosage: 0.5 mg, QD
     Route: 048
     Dates: start: 20120614
  2. CITALOPRAM [Concomitant]
     Indication: ANXIETY
     Dosage: 20 mg, QD
     Route: 048
     Dates: start: 20120521
  3. CONTRACEPTIVES [Concomitant]
     Route: 048

REACTIONS (2)
  - Visual acuity reduced [Recovered/Resolved with Sequelae]
  - Visual field defect [Unknown]
